FAERS Safety Report 20792560 (Version 5)
Quarter: 2024Q2

REPORT INFORMATION
  Report Type: Report from Study
  Country: US (occurrence: US)
  Receive Date: 20220506
  Receipt Date: 20240607
  Transmission Date: 20240716
  Serious: Yes (Death, Other)
  Sender: FDA-Public Use
  Company Number: US-ACADIA PHARMACEUTICALS INC.-ACA-2022-PIM-001334

PATIENT
  Age: 60 Year
  Sex: Male

DRUGS (13)
  1. NUPLAZID [Suspect]
     Active Substance: PIMAVANSERIN TARTRATE
     Indication: Parkinson^s disease psychosis
     Dosage: 34 MILLIGRAM, QD
     Route: 065
  2. NUPLAZID [Suspect]
     Active Substance: PIMAVANSERIN TARTRATE
     Indication: Hallucination
     Dosage: 34 MILLIGRAM, QD
     Route: 048
     Dates: start: 20220301
  3. NUPLAZID [Suspect]
     Active Substance: PIMAVANSERIN TARTRATE
     Indication: Delusion
     Dosage: 34 MILLIGRAM, QD
     Route: 048
     Dates: start: 20220318
  4. NUPLAZID [Suspect]
     Active Substance: PIMAVANSERIN TARTRATE
     Indication: Parkinson^s disease
  5. SINEMET [Concomitant]
     Active Substance: CARBIDOPA\LEVODOPA
     Dosage: 25-100 2 AT 5 AM
  6. SINEMET [Concomitant]
     Active Substance: CARBIDOPA\LEVODOPA
     Dosage: 50/100 AT NIGHT
  7. NEUPRO [Concomitant]
     Active Substance: ROTIGOTINE
     Dosage: 3 MILLIGRAM, DAILY
  8. ARICEPT [Concomitant]
     Active Substance: DONEPEZIL HYDROCHLORIDE
     Dosage: 1 MILLIGRAM, EVERY DAY
  9. SEROQUEL [Concomitant]
     Active Substance: QUETIAPINE FUMARATE
     Dosage: 50 MG QHS
     Dates: start: 202101, end: 20220225
  10. CARBIDOPA\LEVODOPA [Concomitant]
     Active Substance: CARBIDOPA\LEVODOPA
     Dosage: 25/100 QID
  11. ENTACAPONE [Concomitant]
     Active Substance: ENTACAPONE
     Dosage: BID
  12. RASAGILINE [Concomitant]
     Active Substance: RASAGILINE\RASAGILINE MESYLATE
  13. BOTOX [Concomitant]
     Active Substance: ONABOTULINUMTOXINA
     Dosage: 100 UNIT SOV

REACTIONS (9)
  - Death [Fatal]
  - Anxiety [Not Recovered/Not Resolved]
  - Condition aggravated [Not Recovered/Not Resolved]
  - Delusion [Not Recovered/Not Resolved]
  - Drug ineffective [Unknown]
  - Therapeutic product effect decreased [Not Recovered/Not Resolved]
  - Hallucination [Not Recovered/Not Resolved]
  - Therapeutic product effect decreased [Not Recovered/Not Resolved]
  - Hallucination [Not Recovered/Not Resolved]

NARRATIVE: CASE EVENT DATE: 20190130
